FAERS Safety Report 6217824-0 (Version None)
Quarter: 2009Q2

REPORT INFORMATION
  Report Type: 
  Country: None (occurrence: None)
  Receive Date: 20090608
  Receipt Date: 20090608
  Transmission Date: 20091009
  Serious: Yes (Other)
  Sender: FDA-Public Use
  Company Number: US-PFIZER INC-2009182050

PATIENT
  Sex: Female

DRUGS (9)
  1. LYRICA [Suspect]
     Indication: DIABETIC NEUROPATHY
     Dosage: 100 MG, 3X/DAY
     Route: 048
     Dates: start: 20080101, end: 20080101
  2. NEURONTIN [Suspect]
     Indication: DIABETIC NEUROPATHY
     Dosage: UNK
  3. METFORMIN [Suspect]
     Dosage: 850 MG, 3X/DAY
  4. MIRAPEX [Suspect]
     Dosage: 2-3 MG ONCE DAILY
  5. EFFEXOR [Concomitant]
     Dosage: UNK
  6. CYMBALTA [Concomitant]
     Indication: DEPRESSION
     Dosage: UNK
  7. CYMBALTA [Concomitant]
     Indication: NEUROPATHY PERIPHERAL
  8. LASIX [Concomitant]
  9. GLYBURIDE AND METFORMIN HCL [Concomitant]

REACTIONS (7)
  - ABDOMINAL DISCOMFORT [None]
  - FATIGUE [None]
  - HYPERSOMNIA [None]
  - LOSS OF CONSCIOUSNESS [None]
  - OEDEMA PERIPHERAL [None]
  - SKIN DISCOLOURATION [None]
  - YAWNING [None]
